FAERS Safety Report 13407880 (Version 1)
Quarter: 2017Q2

REPORT INFORMATION
  Report Type: Report from Study
  Country: US (occurrence: US)
  Receive Date: 20170406
  Receipt Date: 20170406
  Transmission Date: 20170830
  Serious: Yes (Other)
  Sender: FDA-Public Use
  Company Number: US-ROCHE-1916174

PATIENT

DRUGS (2)
  1. SUNITINIB [Suspect]
     Active Substance: SUNITINIB
     Indication: RENAL CANCER METASTATIC
     Route: 065
  2. BEVACIZUMAB [Suspect]
     Active Substance: BEVACIZUMAB
     Indication: RENAL CANCER METASTATIC
     Route: 065

REACTIONS (3)
  - Encephalopathy [Recovering/Resolving]
  - Hypertension [Recovering/Resolving]
  - Microangiopathic haemolytic anaemia [Unknown]
